FAERS Safety Report 5412815-1 (Version None)
Quarter: 2007Q3

REPORT INFORMATION
  Report Type: 
  Country: None (occurrence: None)
  Receive Date: 20070813
  Receipt Date: 20070731
  Transmission Date: 20080115
  Serious: Yes (Other)
  Sender: FDA-Public Use
  Company Number: US-ELI_LILLY_AND_COMPANY-US200706005419

PATIENT
  Sex: Female
  Weight: 2.07 kg

DRUGS (5)
  1. CYMBALTA [Suspect]
     Dosage: UNK, UNK
     Route: 064
     Dates: start: 20060501, end: 20070107
  2. ZANTAC 150 [Concomitant]
     Dosage: UNK, UNK
     Route: 064
     Dates: start: 20060501, end: 20070101
  3. PRENATAL VITAMINS [Concomitant]
     Dosage: UNK, UNK
     Route: 064
     Dates: start: 20060601, end: 20070201
  4. ZYRTEC [Concomitant]
     Route: 064
  5. FOLIC ACID [Concomitant]
     Route: 064

REACTIONS (5)
  - APNOEA [None]
  - BRADYCARDIA NEONATAL [None]
  - DRUG EXPOSURE DURING PREGNANCY [None]
  - PREMATURE BABY [None]
  - SMALL FOR DATES BABY [None]
